FAERS Safety Report 20876661 (Version 1)
Quarter: 2022Q2

REPORT INFORMATION
  Report Type: Spontaneous
  Country: US (occurrence: US)
  Receive Date: 20220526
  Receipt Date: 20220526
  Transmission Date: 20220720
  Serious: Yes (Hospitalization, Other)
  Sender: FDA-Public Use
  Company Number: US-BRISTOL-MYERS SQUIBB COMPANY-2022-041108

PATIENT
  Age: 69 Year
  Sex: Male
  Weight: 86 kg

DRUGS (1)
  1. REVLIMID [Suspect]
     Active Substance: LENALIDOMIDE
     Indication: Product used for unknown indication
     Dosage: 21 DAYS ON AND 7 DAYS OFF
     Route: 048
     Dates: start: 20201027

REACTIONS (4)
  - Osteomyelitis [Recovered/Resolved]
  - Cardiac murmur [Recovered/Resolved]
  - COVID-19 [Recovered/Resolved]
  - Product dose omission issue [Unknown]

NARRATIVE: CASE EVENT DATE: 20211227
